FAERS Safety Report 7220582-4 (Version None)
Quarter: 2011Q1

REPORT INFORMATION
  Report Type: 
  Country: None (occurrence: None)
  Receive Date: 20110111
  Receipt Date: 20110104
  Transmission Date: 20110831
  Serious: Yes (Death, Hospitalization, Other)
  Sender: FDA-Public Use
  Company Number: CA-PURDUE-CAN-2011-0001670

PATIENT
  Age: 67 Year
  Sex: Male
  Weight: 73.8 kg

DRUGS (9)
  1. HYDROMORPHONE HCL [Suspect]
     Indication: TUMOUR PAIN
     Dosage: UNK
     Dates: start: 20100611
  2. HYDROMORPHONE HCL [Suspect]
     Indication: TUMOUR PAIN
     Dosage: UNK
     Dates: start: 20100521
  3. GABAPENTIN [Concomitant]
     Indication: TUMOUR PAIN
     Dosage: UNK
     Dates: start: 20100728
  4. INVESTIGATIONAL DRUG [Suspect]
     Indication: HEAD AND NECK CANCER
     Dosage: 30 MG, DAILY
     Route: 048
     Dates: start: 20100615, end: 20100825
  5. DEXAMETHASONE [Concomitant]
     Indication: DECREASED APPETITE
     Dosage: UNK
     Dates: start: 20100817
  6. CLONAZEPAM [Concomitant]
     Indication: ANXIETY
     Dosage: UNK
     Dates: start: 20100801
  7. LEVOTHYROXINE SODIUM [Concomitant]
     Indication: HYPOTHYROIDISM
     Dosage: UNK
     Dates: start: 20080101
  8. FLOMAX                             /01280302/ [Concomitant]
     Indication: NOCTURIA
     Dosage: UNK
     Dates: start: 20100715
  9. DEXAMETHASONE [Concomitant]
     Indication: BONE PAIN

REACTIONS (7)
  - SEPSIS [None]
  - CONFUSIONAL STATE [None]
  - PNEUMONIA ASPIRATION [None]
  - HYPOVENTILATION [None]
  - RESTLESSNESS [None]
  - SOMNOLENCE [None]
  - LIVEDO RETICULARIS [None]
